FAERS Safety Report 7027549-X (Version None)
Quarter: 2010Q4

REPORT INFORMATION
  Report Type: 
  Country: None (occurrence: None)
  Receive Date: 20101004
  Receipt Date: 20100928
  Transmission Date: 20110411
  Serious: Yes (Death, Disabling, Other)
  Sender: FDA-Public Use
  Company Number: PHHY2010JP61150

PATIENT
  Age: 1 Year
  Sex: Male

DRUGS (3)
  1. CICLOSPORIN [Suspect]
     Indication: NEPHROTIC SYNDROME
  2. PREDNISOLONE [Concomitant]
     Indication: NEPHROTIC SYNDROME
  3. METHYLPREDNISOLONE [Concomitant]
     Indication: NEPHROTIC SYNDROME

REACTIONS (11)
  - DIFFUSE MESANGIAL SCLEROSIS [None]
  - DRUG INEFFECTIVE [None]
  - DRUG RESISTANCE [None]
  - EPILEPSY [None]
  - HYPERTENSION [None]
  - INFLAMMATION [None]
  - MENTAL RETARDATION [None]
  - OEDEMA [None]
  - PERITONEAL DIALYSIS [None]
  - RENAL FAILURE ACUTE [None]
  - REVERSIBLE POSTERIOR LEUKOENCEPHALOPATHY SYNDROME [None]
